FAERS Safety Report 19903886 (Version 4)
Quarter: 2023Q4

REPORT INFORMATION
  Report Type: Spontaneous
  Country: US (occurrence: US)
  Receive Date: 20211001
  Receipt Date: 20231229
  Transmission Date: 20240110
  Serious: Yes (Hospitalization, Disabling, Other)
  Sender: FDA-Public Use
  Company Number: US-BIOGEN-2018BI00586329

PATIENT
  Age: 56 Year
  Sex: Female

DRUGS (2)
  1. DALFAMPRIDINE [Suspect]
     Active Substance: DALFAMPRIDINE
     Indication: Product used for unknown indication
     Dosage: UNK
     Route: 065
  2. TYSABRI [Suspect]
     Active Substance: NATALIZUMAB
     Indication: Multiple sclerosis
     Dosage: 300 MILLIGRAM, 1 IN 4 WEEKS
     Route: 065
     Dates: start: 20160624

REACTIONS (25)
  - Loss of control of legs [Unknown]
  - Lower limb fracture [Unknown]
  - Wrist fracture [Recovered/Resolved]
  - Multiple sclerosis relapse [Recovered/Resolved]
  - Fall [Recovered/Resolved]
  - Meniscus injury [Unknown]
  - Peroneal nerve palsy [Not Recovered/Not Resolved]
  - Onychomycosis [Unknown]
  - Arthritis [Unknown]
  - Calcinosis [Unknown]
  - Joint injury [Unknown]
  - Arthralgia [Unknown]
  - Temperature intolerance [Not Recovered/Not Resolved]
  - Disturbance in attention [Unknown]
  - COVID-19 [Unknown]
  - Visual acuity reduced [Unknown]
  - Muscle spasms [Unknown]
  - Vision blurred [Unknown]
  - Condition aggravated [Not Recovered/Not Resolved]
  - Drug ineffective [Unknown]
  - Multiple sclerosis [Unknown]
  - Multiple sclerosis relapse [Unknown]
  - Multiple sclerosis [Not Recovered/Not Resolved]
  - Balance disorder [Unknown]
  - Back pain [Unknown]

NARRATIVE: CASE EVENT DATE: 20170601
